FAERS Safety Report 8383794-2 (Version None)
Quarter: 2012Q1

REPORT INFORMATION
  Report Type: 
  Country: None (occurrence: None)
  Receive Date: 20120323
  Receipt Date: 20110329
  Transmission Date: 20120608
  Serious: Yes (Hospitalization)
  Sender: FDA-Public Use
  Company Number: 163-21880-11030591

PATIENT
  Age: 57 Year
  Sex: Male

DRUGS (5)
  1. VELCADE [Concomitant]
  2. PLAVIX [Concomitant]
  3. ZOMETA [Concomitant]
  4. DEXAMETHASONE [Concomitant]
  5. REVLIMID [Suspect]
     Indication: MULTIPLE MYELOMA
     Dosage: 25 MG, DAILY X 21 DAYS, PO
     Route: 047
     Dates: start: 20110201, end: 20110303

REACTIONS (2)
  - ISCHAEMIC STROKE [None]
  - DYSPHAGIA [None]
